FAERS Safety Report 15604390 (Version 1)
Quarter: 2018Q4

REPORT INFORMATION
  Report Type: Report from Study
  Country: US (occurrence: US)
  Receive Date: 20181110
  Receipt Date: 20181110
  Transmission Date: 20190205
  Serious: No
  Sender: FDA-Public Use
  Company Number: US-TEVA-2018-US-972604

PATIENT
  Age: 35 Year
  Sex: Female

DRUGS (2)
  1. COPAXONE [Suspect]
     Active Substance: GLATIRAMER ACETATE
     Indication: MULTIPLE SCLEROSIS
     Route: 058
     Dates: start: 20160202, end: 20171115
  2. COPAXONE [Suspect]
     Active Substance: GLATIRAMER ACETATE
     Route: 058
     Dates: start: 20141004, end: 20160104

REACTIONS (5)
  - Paraesthesia [Unknown]
  - Maternal exposure during pregnancy [Unknown]
  - Hypoaesthesia [Unknown]
  - Therapy change [Unknown]
  - Normal newborn [Unknown]

NARRATIVE: CASE EVENT DATE: 20170913
